FAERS Safety Report 6075832-7 (Version None)
Quarter: 2009Q1

REPORT INFORMATION
  Report Type: 
  Country: None (occurrence: None)
  Receive Date: 20090210
  Receipt Date: 20090129
  Transmission Date: 20090719
  Serious: Yes (Hospitalization)
  Sender: FDA-Public Use
  Company Number: 005531

PATIENT
  Sex: Male

DRUGS (1)
  1. PLETAL [Suspect]
     Indication: PERIPHERAL ARTERIAL OCCLUSIVE DISEASE
     Dosage: 100 MG, BID; ORAL
     Route: 048
     Dates: start: 20081218, end: 20090110

REACTIONS (1)
  - CIRCULATORY COLLAPSE [None]
